FAERS Safety Report 17259534 (Version 3)
Quarter: 2020Q1

REPORT INFORMATION
  Report Type: Spontaneous
  Country: BE (occurrence: BE)
  Receive Date: 20200110
  Receipt Date: 20200117
  Transmission Date: 20200409
  Serious: Yes (Other)
  Sender: FDA-Public Use
  Company Number: BE-PFIZER INC-2020009232

PATIENT
  Age: 74 Year
  Sex: Female

DRUGS (1)
  1. PANTOMED [PANTOPRAZOLE] [Suspect]
     Active Substance: PANTOPRAZOLE
     Indication: GASTROOESOPHAGEAL REFLUX DISEASE
     Dosage: UNK
     Route: 065

REACTIONS (4)
  - Dry mouth [Unknown]
  - Medication error [Unknown]
  - Disease progression [Unknown]
  - Oesophageal stenosis [Unknown]
